FAERS Safety Report 6159548-4 (Version None)
Quarter: 2009Q2

REPORT INFORMATION
  Report Type: 
  Country: None (occurrence: None)
  Receive Date: 20090420
  Receipt Date: 20090414
  Transmission Date: 20091009
  Serious: Yes (Hospitalization)
  Sender: FDA-Public Use
  Company Number: FR-JNJFOC-20090403480

PATIENT
  Sex: Female

DRUGS (6)
  1. HALDOL [Suspect]
     Indication: DRUG USE FOR UNKNOWN INDICATION
     Route: 065
  2. CYCLOPHOSPHAMIDE [Suspect]
     Indication: DRUG USE FOR UNKNOWN INDICATION
     Route: 065
  3. TERCIAN [Suspect]
     Indication: DRUG USE FOR UNKNOWN INDICATION
     Route: 065
  4. PIPORTIL [Suspect]
     Indication: DRUG USE FOR UNKNOWN INDICATION
     Dosage: 3 AMPULLA EACH 15 DAYS
     Route: 030
  5. IMOVANE [Concomitant]
     Route: 065
  6. SOLUPRED [Concomitant]
     Route: 065

REACTIONS (1)
  - PANCYTOPENIA [None]
